FAERS Safety Report 15200748 (Version 1)
Quarter: 2018Q3

REPORT INFORMATION
  Report Type: Spontaneous
  Country: US (occurrence: US)
  Receive Date: 20180726
  Receipt Date: 20180726
  Transmission Date: 20181010
  Serious: No
  Sender: FDA-Public Use
  Company Number: US-SUN PHARMACEUTICAL INDUSTRIES LTD-2018US-162990

PATIENT
  Age: 65 Year
  Sex: Male

DRUGS (3)
  1. TESTOSTERONE. [Suspect]
     Active Substance: TESTOSTERONE
     Indication: BLOOD TESTOSTERONE DECREASED
     Dosage: 0.5 ML, 1/WEEK
     Route: 065
     Dates: start: 201710
  2. TESTOSTERONE. [Suspect]
     Active Substance: TESTOSTERONE
     Dosage: 0.3 ML, 1/WEEK
     Route: 065
  3. TESTOSTERONE. [Suspect]
     Active Substance: TESTOSTERONE
     Dosage: UNK
     Route: 065

REACTIONS (4)
  - Product deposit [Unknown]
  - Product storage error [Unknown]
  - Circumstance or information capable of leading to medication error [Unknown]
  - Product colour issue [Unknown]

NARRATIVE: CASE EVENT DATE: 20180122
